FAERS Safety Report 5382759-2 (Version None)
Quarter: 2007Q2

REPORT INFORMATION
  Report Type: 
  Country: None (occurrence: None)
  Receive Date: 20070629
  Receipt Date: 20070226
  Transmission Date: 20071010
  Serious: Yes (Other)
  Sender: FDA-Public Use
  Company Number: US200702005255

PATIENT
  Age: 84 Year
  Sex: Female

DRUGS (1)
  1. HUMALOG MIX 75/25 [Suspect]
     Dates: start: 19870101

REACTIONS (5)
  - DEMENTIA ALZHEIMER'S TYPE [None]
  - FALL [None]
  - MEMORY IMPAIRMENT [None]
  - OSTEOPOROSIS [None]
  - SPINAL FRACTURE [None]
